FAERS Safety Report 9973374 (Version 1)
Quarter: 2014Q1

REPORT INFORMATION
  Report Type: Report from Study
  Country: US (occurrence: US)
  Receive Date: 20140306
  Receipt Date: 20140306
  Transmission Date: 20141002
  Serious: Yes (Other)
  Sender: FDA-Public Use
  Company Number: US-JNJFOC-20140218196

PATIENT
  Age: 63 Year
  Sex: Female
  Weight: 92.53 kg

DRUGS (10)
  1. REMICADE [Suspect]
     Indication: OSTEOARTHRITIS
     Route: 042
     Dates: start: 20120921
  2. REMICADE [Suspect]
     Indication: RHEUMATOID ARTHRITIS
     Route: 042
     Dates: start: 20120921
  3. COLESTIPOL HCL [Concomitant]
     Indication: GASTROINTESTINAL DISORDER
     Route: 048
  4. LEVOTHYROXINE [Concomitant]
     Indication: THYROID DISORDER
     Route: 048
     Dates: start: 1979
  5. GABAPENTIN [Concomitant]
     Indication: FIBROMYALGIA
     Dosage: 600MG ONCE IN MORNING AND 300MG ONCE IN EVENING
     Route: 048
     Dates: start: 2013
  6. LYRICA [Concomitant]
     Indication: FIBROMYALGIA
     Route: 048
     Dates: end: 2013
  7. LOSARTAN AND HYDROCHLOROTHIAZIDE [Concomitant]
     Indication: BLOOD PRESSURE
     Dosage: 100/12.5 MG
     Route: 048
     Dates: start: 2013
  8. FOLIC ACID [Concomitant]
     Indication: RHEUMATOID ARTHRITIS
     Route: 048
     Dates: start: 20120921
  9. METHOTREXATE [Concomitant]
     Indication: OSTEOARTHRITIS
     Route: 048
     Dates: start: 20120921
  10. METHOTREXATE [Concomitant]
     Indication: RHEUMATOID ARTHRITIS
     Route: 048
     Dates: start: 20120921

REACTIONS (3)
  - Extraocular muscle paresis [Not Recovered/Not Resolved]
  - Eyelid ptosis [Not Recovered/Not Resolved]
  - Off label use [Not Recovered/Not Resolved]
